FAERS Safety Report 4663998-2 (Version None)
Quarter: 2005Q2

REPORT INFORMATION
  Report Type: 
  Country: None (occurrence: None)
  Receive Date: 20050516
  Receipt Date: 20050516
  Transmission Date: 20051028
  Serious: Yes (Hospitalization)
  Sender: FDA-Public Use
  Company Number: None

PATIENT
  Age: 60 Year
  Sex: Male
  Weight: 93.8946 kg

DRUGS (11)
  1. RITUXIMAB [Suspect]
     Indication: CHRONIC LYMPHOCYTIC LEUKAEMIA
     Dosage: 375 MG/M2 TIW X 4 WKS
     Dates: start: 20050425, end: 20050502
  2. ETANERCEPT [Suspect]
     Indication: CHRONIC LYMPHOCYTIC LEUKAEMIA
     Dosage: 25 MG SQ MON/THU X 5 WK
     Route: 058
     Dates: start: 20050418, end: 20050502
  3. BACTRIM DS [Concomitant]
  4. ACYCLOVIR [Concomitant]
  5. ALLEGRA [Concomitant]
  6. ZETIA [Concomitant]
  7. PRAVACHOL [Concomitant]
  8. ZOFRAN [Concomitant]
  9. BENADRYL [Concomitant]
  10. TYLENOL (CAPLET) [Concomitant]
  11. DECADRON [Concomitant]

REACTIONS (5)
  - CONDITION AGGRAVATED [None]
  - FATIGUE [None]
  - HAEMOPTYSIS [None]
  - LUNG INFILTRATION [None]
  - OXYGEN SATURATION DECREASED [None]
